FAERS Safety Report 5169051-6 (Version None)
Quarter: 2006Q4

REPORT INFORMATION
  Report Type: 
  Country: None (occurrence: None)
  Receive Date: 20061211
  Receipt Date: 20061201
  Transmission Date: 20070319
  Serious: Yes (Hospitalization)
  Sender: FDA-Public Use
  Company Number: 2006SE06488

PATIENT
  Age: 25 Year
  Sex: Female

DRUGS (3)
  1. SEROQUEL [Suspect]
     Indication: SCHIZOAFFECTIVE DISORDER
     Route: 048
     Dates: start: 20050801, end: 20060901
  2. ZUKLOPENTIXOLI [Concomitant]
     Route: 048
     Dates: start: 20060201
  3. PAROXETINI [Concomitant]
     Route: 048
     Dates: start: 20060201

REACTIONS (2)
  - DRUG INEFFECTIVE [None]
  - SCHIZOAFFECTIVE DISORDER [None]
